FAERS Safety Report 24344534 (Version 1)
Quarter: 2024Q3

REPORT INFORMATION
  Report Type: Report from Study
  Country: US (occurrence: US)
  Receive Date: 20240920
  Receipt Date: 20240920
  Transmission Date: 20241017
  Serious: Yes (Hospitalization)
  Sender: BIOGEN
  Company Number: US-BIOGEN-2024BI01268171

PATIENT
  Sex: Female

DRUGS (1)
  1. TYSABRI [Suspect]
     Active Substance: NATALIZUMAB
     Indication: Multiple sclerosis
     Route: 050
     Dates: start: 20231215

REACTIONS (5)
  - Wrist fracture [Unknown]
  - Fall [Recovered/Resolved]
  - Pelvic pain [Unknown]
  - Wound [Unknown]
  - Skin laceration [Unknown]
